FAERS Safety Report 4539036-9 (Version None)
Quarter: 2004Q4

REPORT INFORMATION
  Report Type: 
  Country: None (occurrence: None)
  Receive Date: 20041222
  Receipt Date: 20041210
  Transmission Date: 20050328
  Serious: Yes (Other)
  Sender: FDA-Public Use
  Company Number: 2004108868

PATIENT
  Sex: Female
  Weight: 68.0396 kg

DRUGS (6)
  1. ROGAINE [Suspect]
     Indication: ALOPECIA
     Dosage: 6 SPRAYS ONCE A DAY, TOPICAL
     Route: 061
  2. WARFARIN SODIUM [Concomitant]
  3. DIGOXIN [Concomitant]
  4. ENALAPRIL MALEATE [Concomitant]
  5. VERAPAMIL [Concomitant]
  6. VITAMINS (VITAMINS) [Concomitant]

REACTIONS (2)
  - CARDIAC VALVE DISEASE [None]
  - THROMBOSIS [None]
